FAERS Safety Report 14702470 (Version 4)
Quarter: 2018Q3

REPORT INFORMATION
  Report Type: Spontaneous
  Country: US (occurrence: US)
  Receive Date: 20180401
  Receipt Date: 20180827
  Transmission Date: 20181010
  Serious: Yes (Hospitalization, Other)
  Sender: FDA-Public Use
  Company Number: US-JNJFOC-20180329215

PATIENT
  Age: 74 Year
  Sex: Female

DRUGS (4)
  1. XARELTO [Suspect]
     Active Substance: RIVAROXABAN
     Indication: ATRIAL FIBRILLATION
     Dosage: VARYING DOSES 10 MG, 15 MG AND 20 MG
     Route: 048
     Dates: start: 20120611, end: 20160408
  2. XARELTO [Suspect]
     Active Substance: RIVAROXABAN
     Indication: THROMBOSIS PROPHYLAXIS
     Dosage: VARYING DOSES 10 MG, 15 MG AND 20 MG
     Route: 048
     Dates: start: 20120611, end: 20160408
  3. ASPIRIN. [Suspect]
     Active Substance: ASPIRIN
     Indication: CEREBROVASCULAR ACCIDENT PROPHYLAXIS
     Route: 048
  4. XARELTO [Suspect]
     Active Substance: RIVAROXABAN
     Indication: CEREBROVASCULAR ACCIDENT PROPHYLAXIS
     Dosage: VARYING DOSES 10 MG, 15 MG AND 20 MG
     Route: 048
     Dates: start: 20120611, end: 20160408

REACTIONS (4)
  - Gastrointestinal haemorrhage [Recovering/Resolving]
  - Off label use [Unknown]
  - Thrombocytopenia [Unknown]
  - Prescribed underdose [Unknown]

NARRATIVE: CASE EVENT DATE: 20141120
